FAERS Safety Report 21729293 (Version 3)
Quarter: 2023Q2

REPORT INFORMATION
  Report Type: Report from Study
  Country: US (occurrence: US)
  Receive Date: 20221214
  Receipt Date: 20230518
  Transmission Date: 20230721
  Serious: Yes (Hospitalization, Other)
  Sender: FDA-Public Use
  Company Number: US-GILEAD-2022-0608673

PATIENT
  Age: 62 Year
  Sex: Male
  Weight: 104 kg

DRUGS (60)
  1. BREXUCABTAGENE AUTOLEUCEL [Suspect]
     Active Substance: BREXUCABTAGENE AUTOLEUCEL
     Indication: Mantle cell lymphoma
     Dosage: 2 X 10^6 ANTI-CD19 CAR T CELLS PER KG
     Route: 065
     Dates: start: 20220411, end: 20220411
  2. FLUDARABINE [Suspect]
     Active Substance: FLUDARABINE PHOSPHATE
     Indication: Bone marrow conditioning regimen
     Dosage: ^67^ (UNITS NOT PROVIDED)
     Route: 065
     Dates: start: 20220406, end: 20220408
  3. CYCLOPHOSPHAMIDE [Suspect]
     Active Substance: CYCLOPHOSPHAMIDE
     Indication: Bone marrow conditioning regimen
     Dosage: ^1116^ (UNITS NOT PROVIDED)
     Route: 065
     Dates: start: 20220406, end: 20220408
  4. CYANOCOBALAMIN [Concomitant]
     Active Substance: CYANOCOBALAMIN
     Dosage: 100,OTHER,DAILY
     Route: 048
     Dates: start: 20211202, end: 20220425
  5. CHOLECALCIFEROL [Concomitant]
     Active Substance: CHOLECALCIFEROL
     Dosage: 50,MG,TWICE DAILY
     Route: 048
     Dates: start: 20211221, end: 20220425
  6. ACYCLOVIR [Concomitant]
     Active Substance: ACYCLOVIR
     Dosage: 400,MG,TWICE DAILY
     Route: 048
     Dates: start: 20220324
  7. LOPERAMIDE [Concomitant]
     Active Substance: LOPERAMIDE
     Dosage: 4,MG,OTHER
     Route: 048
     Dates: start: 20220410, end: 20220426
  8. TYLENOL [Concomitant]
     Active Substance: ACETAMINOPHEN
     Dosage: 650,MG,OTHER
     Route: 048
     Dates: start: 20220410, end: 20220426
  9. ATIVAN [Concomitant]
     Active Substance: LORAZEPAM
     Dosage: 1,MG,OTHER
     Route: 030
     Dates: start: 20220410, end: 20220426
  10. CEFEPIME [Concomitant]
     Active Substance: CEFEPIME HYDROCHLORIDE
     Dosage: 50,ML,OTHER
     Route: 042
     Dates: start: 20220412, end: 20220417
  11. DIBASIC POTASSIUM PHOSPHATE [Concomitant]
     Active Substance: DIBASIC POTASSIUM PHOSPHATE
     Dosage: 20,OTHER,ONCE
     Route: 042
     Dates: start: 20220412, end: 20220412
  12. TOCILIZUMAB [Concomitant]
     Active Substance: TOCILIZUMAB
     Dosage: 800,MG,ONCE
     Route: 042
     Dates: start: 20220413, end: 20220413
  13. TOCILIZUMAB [Concomitant]
     Active Substance: TOCILIZUMAB
     Dosage: 800,MG,ONCE
     Route: 042
     Dates: start: 20220415, end: 20220415
  14. DEXAMETHASONE [Concomitant]
     Active Substance: DEXAMETHASONE
     Dosage: 10,MG,ONCE
     Route: 042
     Dates: start: 20220413, end: 20220413
  15. DEXAMETHASONE [Concomitant]
     Active Substance: DEXAMETHASONE
     Dosage: 10,MG,ONCE
     Route: 042
     Dates: start: 20220415, end: 20220415
  16. POSACONAZOLE [Concomitant]
     Active Substance: POSACONAZOLE
     Dosage: 20,OTHER,ONCE
     Route: 042
     Dates: start: 20220418, end: 20220418
  17. POSACONAZOLE [Concomitant]
     Active Substance: POSACONAZOLE
     Dosage: 300,OTHER,TWICE DAILY
     Route: 042
     Dates: start: 20220416, end: 20220418
  18. POSACONAZOLE [Concomitant]
     Active Substance: POSACONAZOLE
     Dosage: 300,MG,DAILY
     Route: 048
     Dates: start: 20220426, end: 20220720
  19. ATOVAQUONE [Concomitant]
     Active Substance: ATOVAQUONE
     Dosage: 1500,MG,DAILY
     Route: 048
     Dates: start: 20220419, end: 20220426
  20. ATOVAQUONE [Concomitant]
     Active Substance: ATOVAQUONE
     Dosage: 1500,MG,DAILY
     Route: 048
     Dates: start: 20220420
  21. LEVETIRACETAM [Concomitant]
     Active Substance: LEVETIRACETAM
     Dosage: 1,500,MG,TWICE DAILY
     Route: 048
     Dates: start: 20220420, end: 20220424
  22. LEVETIRACETAM [Concomitant]
     Active Substance: LEVETIRACETAM
     Dosage: 500,MG,TWICE DAILY
     Route: 048
     Dates: start: 20220410, end: 20220415
  23. LEVETIRACETAM [Concomitant]
     Active Substance: LEVETIRACETAM
     Dosage: 1000,MG,TWICE DAILY
     Route: 048
     Dates: start: 20220425, end: 20220705
  24. LEVETIRACETAM [Concomitant]
     Active Substance: LEVETIRACETAM
     Dosage: 500,MG,TWICE DAILY
     Route: 048
     Dates: start: 20220826
  25. LEVOTHYROXINE [Concomitant]
     Active Substance: LEVOTHYROXINE
     Dosage: 150,OTHER,DAILY
     Route: 048
     Dates: start: 20220420, end: 20220426
  26. LEVOTHYROXINE [Concomitant]
     Active Substance: LEVOTHYROXINE
     Dosage: 150,OTHER,DAILY
     Route: 048
     Dates: start: 20211011
  27. METHYLPREDNISOLONE [Concomitant]
     Active Substance: METHYLPREDNISOLONE
     Dosage: 250,MG,DAILY
     Route: 042
     Dates: start: 20220421, end: 20220421
  28. METHYLPREDNISOLONE [Concomitant]
     Active Substance: METHYLPREDNISOLONE
     Dosage: 1000,MG,ONCE
     Route: 042
     Dates: start: 20220415, end: 20220418
  29. METHYLPREDNISOLONE [Concomitant]
     Active Substance: METHYLPREDNISOLONE
     Dosage: 500,MG,DAILY
     Route: 042
     Dates: start: 20220419, end: 20220420
  30. METHYLPREDNISOLONE [Concomitant]
     Active Substance: METHYLPREDNISOLONE
     Dosage: 100,MG,TWICE DAILY
     Route: 042
     Dates: start: 20220422, end: 20220422
  31. ZOSYN [Concomitant]
     Active Substance: PIPERACILLIN SODIUM\TAZOBACTAM SODIUM
     Dosage: 3.375,G,ONCE
     Route: 042
     Dates: start: 20220503, end: 20220506
  32. VITAMIN D3 [Concomitant]
     Active Substance: CHOLECALCIFEROL
     Dosage: 500,MG,TWICE DAILY
     Route: 048
     Dates: start: 20211221, end: 20220425
  33. ALLOPURINOL [Concomitant]
     Active Substance: ALLOPURINOL
     Dosage: 300,MG,DAILY
     Route: 048
     Dates: start: 20220406, end: 20220415
  34. FOSAPREPITANT [Concomitant]
     Active Substance: FOSAPREPITANT
     Dosage: 150,MG,ONCE
     Route: 042
     Dates: start: 20220406, end: 20220406
  35. ONDANSETRON [Concomitant]
     Active Substance: ONDANSETRON
     Dosage: 16,MG,DAILY
     Route: 042
     Dates: start: 20220406, end: 20220408
  36. ONDANSETRON [Concomitant]
     Active Substance: ONDANSETRON
     Dosage: 8,MG,DAILY
     Route: 042
     Dates: start: 20220412, end: 20220412
  37. FUROSEMIDE [Concomitant]
     Active Substance: FUROSEMIDE
     Dosage: 20,MG,ONCE
     Route: 042
     Dates: start: 20220408, end: 20220408
  38. FUROSEMIDE [Concomitant]
     Active Substance: FUROSEMIDE
     Dosage: 20,MG,ONCE
     Route: 048
     Dates: start: 20220409, end: 20220409
  39. IMODIUM [Concomitant]
     Active Substance: LOPERAMIDE HYDROCHLORIDE
     Dosage: 4,MG,OTHER
     Route: 048
     Dates: start: 20220410, end: 20220413
  40. ACETAMINOPHEN [Concomitant]
     Active Substance: ACETAMINOPHEN
     Dosage: 650,MG,ONCE
     Route: 048
     Dates: start: 20220411, end: 20220411
  41. ACETAMINOPHEN [Concomitant]
     Active Substance: ACETAMINOPHEN
     Dosage: 1000,MG,ONCE
     Route: 042
     Dates: start: 20220415, end: 20220415
  42. DIPHENHYDRAMINE [Concomitant]
     Active Substance: DIPHENHYDRAMINE
     Dosage: 12.5,MG,ONCE
     Route: 042
     Dates: start: 20220411, end: 20220411
  43. FILGRASTIM [Concomitant]
     Active Substance: FILGRASTIM
     Dosage: 480,OTHER,DAILY
     Route: 058
     Dates: start: 20220412, end: 20220419
  44. VANCOMYCIN [Concomitant]
     Active Substance: VANCOMYCIN
     Dosage: 1.75,G,ONCE
     Route: 042
     Dates: start: 20220414, end: 20220414
  45. VANCOMYCIN [Concomitant]
     Active Substance: VANCOMYCIN
     Dosage: 750,MG,DAILY
     Route: 042
     Dates: start: 20220414, end: 20220415
  46. HALOPERIDOL [Concomitant]
     Active Substance: HALOPERIDOL
     Dosage: 0.5,MG,ONCE
     Route: 042
     Dates: start: 20220415, end: 20220415
  47. KEPPRA [Concomitant]
     Active Substance: LEVETIRACETAM
     Dosage: 500,MG,ONCE
     Route: 042
     Dates: start: 20220415, end: 20220415
  48. KEPPRA [Concomitant]
     Active Substance: LEVETIRACETAM
     Dosage: 1500,MG,TWICE DAILY
     Route: 042
     Dates: start: 20220416, end: 20220417
  49. ANAKINRA [Concomitant]
     Active Substance: ANAKINRA
     Dosage: 100,MG,FOUR TIMES DAILY
     Route: 058
     Dates: start: 20220416, end: 20220421
  50. DEXMEDETOMIDINE [Concomitant]
     Active Substance: DEXMEDETOMIDINE
     Dosage: 400,OTHER,ONCE
     Route: 042
     Dates: start: 20220418, end: 20220419
  51. CEREBYX [Concomitant]
     Active Substance: FOSPHENYTOIN SODIUM
     Dosage: 2110,MG,ONCE
     Route: 042
     Dates: start: 20220418, end: 20220418
  52. CRYOPRECIPITATED ANTIHEMOPHILIC FACTOR (HUMAN) [Concomitant]
     Active Substance: CRYOPRECIPITATED ANTIHEMOPHILIC FACTOR (HUMAN)
     Dosage: 1,OTHER,ONCE
     Route: 042
     Dates: start: 20220420, end: 20220420
  53. CRYOPRECIPITATED ANTIHEMOPHILIC FACTOR (HUMAN) [Concomitant]
     Active Substance: CRYOPRECIPITATED ANTIHEMOPHILIC FACTOR (HUMAN)
     Dosage: 1,OTHER,ONCE
     Route: 042
     Dates: start: 20220422, end: 20220422
  54. CRYOPRECIPITATED ANTIHEMOPHILIC FACTOR (HUMAN) [Concomitant]
     Active Substance: CRYOPRECIPITATED ANTIHEMOPHILIC FACTOR (HUMAN)
     Dosage: 2,OTHER,ONCE
     Route: 042
     Dates: start: 20220424, end: 20220424
  55. HUMAN RED BLOOD CELL [Concomitant]
     Active Substance: HUMAN RED BLOOD CELL
     Dosage: 170,ML,ONCE
     Route: 042
     Dates: start: 20220422, end: 20220422
  56. DECADRON [Concomitant]
     Active Substance: DEXAMETHASONE
     Dosage: 4,MG,ONCE
     Route: 048
     Dates: start: 20220427, end: 20220427
  57. DILAUDID [Concomitant]
     Active Substance: HYDROMORPHONE HYDROCHLORIDE
     Dosage: 0.2,MG,ONCE
     Route: 042
     Dates: start: 20220504, end: 20220504
  58. LEVOFLOXACIN [Concomitant]
     Active Substance: LEVOFLOXACIN
     Dosage: 750,MG,DAILY
     Route: 048
     Dates: start: 20220504, end: 20220514
  59. HYDROCIL INSTANT [PSYLLIUM HYDROPHILIC MUCILLOID] [Concomitant]
     Dosage: 1,OTHER,DAILY
     Route: 048
     Dates: start: 20220505, end: 20220505
  60. METRONIDAZOLE [Concomitant]
     Active Substance: METRONIDAZOLE
     Dosage: 500,MG,THREE TIMES DAILY
     Route: 048
     Dates: start: 20220506, end: 20220509

REACTIONS (1)
  - Anal abscess [Recovered/Resolved]

NARRATIVE: CASE EVENT DATE: 20220503
